FAERS Safety Report 25528984 (Version 1)
Quarter: 2025Q3

REPORT INFORMATION
  Report Type: Spontaneous
  Country: CN (occurrence: CN)
  Receive Date: 20250708
  Receipt Date: 20250708
  Transmission Date: 20251021
  Serious: Yes (Other)
  Sender: DR REDDYS
  Company Number: None

PATIENT
  Age: 37 Year
  Sex: Female
  Weight: 81.5 kg

DRUGS (1)
  1. CARBOPROST TROMETHAMINE [Suspect]
     Active Substance: CARBOPROST TROMETHAMINE
     Indication: Uterine hypotonus
     Dosage: 250?G,QD
     Route: 030
     Dates: start: 20250602, end: 20250602

REACTIONS (1)
  - Gastrointestinal malformation [Recovered/Resolved]

NARRATIVE: CASE EVENT DATE: 20250602
